FAERS Safety Report 7561392-8 (Version None)
Quarter: 2011Q2

REPORT INFORMATION
  Report Type: 
  Country: None (occurrence: None)
  Receive Date: 20110621
  Receipt Date: 20101130
  Transmission Date: 20111010
  Serious: No
  Sender: FDA-Public Use
  Company Number: US-ASTRAZENECA-2010SE56658

PATIENT
  Sex: Male

DRUGS (2)
  1. PULMICORT FLEXHALER [Suspect]
     Indication: EMPHYSEMA
     Dosage: 320 MCG BID
     Route: 055
     Dates: start: 20101019
  2. PULMICORT FLEXHALER [Suspect]
     Dosage: 180 MCG ONE PUFF TWICE A DAY
     Route: 055
     Dates: start: 20101019

REACTIONS (2)
  - DRUG DOSE OMISSION [None]
  - COUGH [None]
